FAERS Safety Report 13891197 (Version 1)
Quarter: 2017Q3

REPORT INFORMATION
  Report Type: Report from Study
  Country: US (occurrence: US)
  Receive Date: 20170822
  Receipt Date: 20170822
  Transmission Date: 20171127
  Serious: Yes (Hospitalization)
  Sender: FDA-Public Use
  Company Number: US-ROCHE-1976141

PATIENT
  Age: 59 Year
  Sex: Male
  Weight: 67.06 kg

DRUGS (4)
  1. DILTIAZEM. [Suspect]
     Active Substance: DILTIAZEM
     Indication: NEOPLASM MALIGNANT
     Route: 042
  2. VANCOMYCIN [Concomitant]
     Active Substance: VANCOMYCIN
     Route: 042
  3. TRASTUZUMAB EMTANSINE [Suspect]
     Active Substance: ADO-TRASTUZUMAB EMTANSINE
     Indication: NEOPLASM MALIGNANT
     Dosage: OVER 30-90 MINUTES ON DAY 1 OF 21 DAY CYCLE (AS PER PROTOCOL).?LAST DOSE ADMINISTERED  ON 29/DEC/201
     Route: 042
     Dates: start: 20160915
  4. LEVETIRACETAM. [Suspect]
     Active Substance: LEVETIRACETAM
     Indication: NEOPLASM MALIGNANT
     Route: 065

REACTIONS (5)
  - Respiratory failure [Recovered/Resolved]
  - Infection [Recovered/Resolved]
  - Infestation [Recovered/Resolved]
  - Seizure [Recovered/Resolved]
  - Atrial fibrillation [Recovered/Resolved]

NARRATIVE: CASE EVENT DATE: 20170122
